FAERS Safety Report 15453465 (Version 2)
Quarter: 2019Q1

REPORT INFORMATION
  Report Type: Report from Study
  Country: DE (occurrence: DE)
  Receive Date: 20181001
  Receipt Date: 20190117
  Transmission Date: 20190417
  Serious: Yes (Hospitalization, Other)
  Sender: FDA-Public Use
  Company Number: DE-MYLANLABS-2018M1071031

PATIENT
  Age: 72 Year
  Sex: Female

DRUGS (20)
  1. TOCILIZUMAB. [Suspect]
     Active Substance: TOCILIZUMAB
     Indication: RHEUMATOID ARTHRITIS
     Dosage: DAILY DOSE: 162 MG MILLGRAM(S) EVERY WEEKS
     Route: 058
     Dates: end: 20160625
  2. PREDNISOLON                        /00016201/ [Concomitant]
     Active Substance: PREDNISOLONE
  3. PANTOPRAZOL                        /01263201/ [Concomitant]
     Active Substance: PANTOPRAZOLE
  4. RISEDRONIC ACID [Concomitant]
     Active Substance: RISEDRONIC ACID
  5. CELECOXIB. [Concomitant]
     Active Substance: CELECOXIB
  6. ACTRAPID [Concomitant]
     Active Substance: INSULIN HUMAN
  7. METHOTREXATE. [Suspect]
     Active Substance: METHOTREXATE
     Indication: RHEUMATOID ARTHRITIS
     Dosage: 15 MG, UNK
     Route: 065
     Dates: end: 201610
  8. TOCILIZUMAB. [Suspect]
     Active Substance: TOCILIZUMAB
     Dosage: DAILY DOSE: 162 MG MILLGRAM(S) EVERY WEEKS
     Route: 058
     Dates: start: 20160715
  9. TILIDIN COMP [Concomitant]
     Active Substance: NALOXONE HYDROCHLORIDE\TILIDINE HYDROCHLORIDE
  10. FOLIC ACID. [Concomitant]
     Active Substance: FOLIC ACID
  11. ESOMEP                             /01479301/ [Concomitant]
     Active Substance: ESOMEPRAZOLE
  12. PROTAPHANE [Concomitant]
     Active Substance: INSULIN HUMAN
  13. DEKRISTOL [Concomitant]
     Active Substance: CHOLECALCIFEROL
  14. ROACTEMRA [Suspect]
     Active Substance: TOCILIZUMAB
     Indication: RHEUMATOID ARTHRITIS
     Dosage: DAILY DOSE: 162 MG MILLGRAM(S) EVERY WEEKS
     Route: 058
     Dates: end: 20160625
  15. BUDIAIR [Concomitant]
     Active Substance: BUDESONIDE
  16. RALOXIFENE. [Concomitant]
     Active Substance: RALOXIFENE
  17. TOCILIZUMAB. [Suspect]
     Active Substance: TOCILIZUMAB
     Indication: RHEUMATOID ARTHRITIS
     Dosage: 15 MG, UNK
     Route: 065
  18. VALSARTAN. [Concomitant]
     Active Substance: VALSARTAN
  19. LEVEMIR [Concomitant]
     Active Substance: INSULIN DETEMIR
  20. NOVAMINSULFON [Concomitant]
     Active Substance: METAMIZOLE

REACTIONS (3)
  - Pneumonia [Unknown]
  - Pleurisy [Unknown]
  - Rheumatoid arthritis [Not Recovered/Not Resolved]

NARRATIVE: CASE EVENT DATE: 201612
